FAERS Safety Report 16945004 (Version 3)
Quarter: 2020Q4

REPORT INFORMATION
  Report Type: Other
  Country: DE (occurrence: DE)
  Receive Date: 20191022
  Receipt Date: 20201009
  Transmission Date: 20210113
  Serious: Yes (Other)
  Sender: FDA-Public Use
  Company Number: DE-ROCHE-2437281

PATIENT
  Age: 47 Year
  Sex: Female
  Weight: 53 kg

DRUGS (5)
  1. INTERFERON BETA-1A [Concomitant]
     Active Substance: INTERFERON BETA-1A
  2. GLATIRAMER ACETATE. [Concomitant]
     Active Substance: GLATIRAMER ACETATE
  3. OCRELIZUMAB. [Suspect]
     Active Substance: OCRELIZUMAB
     Indication: SECONDARY PROGRESSIVE MULTIPLE SCLEROSIS
     Route: 042
     Dates: start: 20180920, end: 20181004
  4. OCRELIZUMAB. [Suspect]
     Active Substance: OCRELIZUMAB
     Route: 042
     Dates: start: 20190415
  5. IMUREK [Concomitant]
     Active Substance: AZATHIOPRINE
     Dates: start: 1994

REACTIONS (2)
  - Pneumonia [Recovering/Resolving]
  - Urinary tract infection [Recovered/Resolved]

NARRATIVE: CASE EVENT DATE: 20190804
